FAERS Safety Report 5920883-3 (Version None)
Quarter: 2008Q4

REPORT INFORMATION
  Report Type: 
  Country: None (occurrence: None)
  Receive Date: 20081015
  Receipt Date: 20081015
  Transmission Date: 20090506
  Serious: Yes (Other)
  Sender: FDA-Public Use
  Company Number: None

PATIENT
  Age: 36 Year
  Sex: Female
  Weight: 78.0187 kg

DRUGS (2)
  1. SINGULAIR [Suspect]
     Indication: ASTHMA
     Dosage: 10MG 1 TABLET PO
     Route: 048
     Dates: start: 20081013, end: 20081014
  2. SINGULAIR [Suspect]
     Indication: CONDITION AGGRAVATED
     Dosage: 10MG 1 TABLET PO
     Route: 048
     Dates: start: 20081013, end: 20081014

REACTIONS (7)
  - ANXIETY [None]
  - ASTHENIA [None]
  - HEART RATE INCREASED [None]
  - INSOMNIA [None]
  - PARANOIA [None]
  - RESTLESSNESS [None]
  - TREMOR [None]
